FAERS Safety Report 17632291 (Version 1)
Quarter: 2020Q2

REPORT INFORMATION
  Report Type: Other
  Country: CA (occurrence: CA)
  Receive Date: 20200406
  Receipt Date: 20200406
  Transmission Date: 20200713
  Serious: Yes (Other)
  Sender: FDA-Public Use
  Company Number: CA-GLENMARK PHARMACEUTICALS-2020GMK047084

PATIENT

DRUGS (1)
  1. GABAPENTIN. [Suspect]
     Active Substance: GABAPENTIN
     Indication: NEURALGIA
     Dosage: 600 MILLIGRAM, QID (4 EVERY 1 DAY)
     Route: 048

REACTIONS (5)
  - Amnesia [Unknown]
  - Off label use [Unknown]
  - Speech disorder [Unknown]
  - Tardive dyskinesia [Unknown]
  - Product use in unapproved indication [Unknown]
